FAERS Safety Report 16561191 (Version 2)
Quarter: 2019Q3

REPORT INFORMATION
  Report Type: Spontaneous
  Country: US (occurrence: US)
  Receive Date: 20190711
  Receipt Date: 20190718
  Transmission Date: 20191004
  Serious: Yes (Hospitalization, Other)
  Sender: FDA-Public Use
  Company Number: US-PFIZER INC-2019293116

PATIENT
  Age: 20 Year
  Sex: Male

DRUGS (1)
  1. KETAMINE HCL [Suspect]
     Active Substance: KETAMINE HYDROCHLORIDE
     Dosage: 0.5 CC
     Route: 042

REACTIONS (2)
  - Drug abuse [Unknown]
  - Dystonia [Recovered/Resolved]
